FAERS Safety Report 17868284 (Version 4)
Quarter: 2020Q4

REPORT INFORMATION
  Report Type: Report from Study
  Country: None (occurrence: US)
  Receive Date: 20200605
  Receipt Date: 20201110
  Transmission Date: 20210113
  Serious: Yes (Other)
  Sender: FDA-Public Use
  Company Number: US-ABBVIE-20K-163-3425770-00

PATIENT
  Age: 57 Year
  Sex: Male

DRUGS (4)
  1. HUMIRA [Suspect]
     Active Substance: ADALIMUMAB
     Indication: COLITIS ULCERATIVE
     Route: 058
     Dates: start: 202004, end: 202004
  2. HUMIRA [Suspect]
     Active Substance: ADALIMUMAB
     Route: 058
     Dates: start: 20200413, end: 20200413
  3. HUMIRA [Suspect]
     Active Substance: ADALIMUMAB
     Dosage: DAY 15
     Route: 058
     Dates: start: 20200427, end: 20200427
  4. HUMIRA [Suspect]
     Active Substance: ADALIMUMAB
     Route: 058
     Dates: start: 20200513, end: 20200819

REACTIONS (27)
  - Abdominal pain [Not Recovered/Not Resolved]
  - Arthralgia [Unknown]
  - Blindness transient [Recovered/Resolved]
  - Chills [Recovered/Resolved]
  - Nasal congestion [Unknown]
  - Rhinorrhoea [Unknown]
  - Fatigue [Unknown]
  - Visual impairment [Unknown]
  - Hypersensitivity [Unknown]
  - Eye pruritus [Unknown]
  - Scratch [Unknown]
  - Hypoaesthesia [Unknown]
  - Somnolence [Unknown]
  - Depressed mood [Unknown]
  - Insomnia [Not Recovered/Not Resolved]
  - Hyperhidrosis [Unknown]
  - Rectal haemorrhage [Recovered/Resolved]
  - Weight fluctuation [Unknown]
  - Diarrhoea [Not Recovered/Not Resolved]
  - Drug ineffective [Unknown]
  - Cerumen impaction [Unknown]
  - Mucous stools [Not Recovered/Not Resolved]
  - Renal pain [Recovered/Resolved]
  - Injection site erythema [Recovered/Resolved]
  - Appetite disorder [Recovered/Resolved]
  - Ear pain [Unknown]
  - Muscle spasms [Unknown]

NARRATIVE: CASE EVENT DATE: 2020
